FAERS Safety Report 17903713 (Version 1)
Quarter: 2020Q2

REPORT INFORMATION
  Report Type: Report from Study
  Country: PL (occurrence: PL)
  Receive Date: 20200617
  Receipt Date: 20200617
  Transmission Date: 20200714
  Serious: Yes (Hospitalization)
  Sender: FDA-Public Use
  Company Number: PL-CLOVIS ONCOLOGY-CLO-2020-001070

PATIENT

DRUGS (4)
  1. ETHINYLESTRADIOL, LEVONORGESTREL [Suspect]
     Active Substance: ETHINYL ESTRADIOL\LEVONORGESTREL
     Indication: NEOPLASM MALIGNANT
     Dosage: 0.03/0.15 MG, ONCE
     Route: 048
     Dates: start: 20190715, end: 20190715
  2. RUCAPARIB [Suspect]
     Active Substance: RUCAPARIB
     Indication: NEOPLASM MALIGNANT
     Dosage: 600 MG, BID
     Route: 048
     Dates: start: 20190719
  3. RUCAPARIB [Suspect]
     Active Substance: RUCAPARIB
     Dosage: 400 MG, BID
     Route: 048
     Dates: end: 20200503
  4. ETHINYLESTRADIOL, LEVONORGESTREL [Suspect]
     Active Substance: ETHINYL ESTRADIOL\LEVONORGESTREL
     Dosage: 0.3/0.15 MG, ONCE
     Route: 048
     Dates: start: 20190802, end: 20190802

REACTIONS (1)
  - Gastritis [Recovered/Resolved]

NARRATIVE: CASE EVENT DATE: 20200523
